FAERS Safety Report 26194309 (Version 1)
Quarter: 2025Q4

REPORT INFORMATION
  Report Type: Spontaneous
  Country: US (occurrence: US)
  Receive Date: 20251224
  Receipt Date: 20251224
  Transmission Date: 20260118
  Serious: Yes (Hospitalization, Other)
  Sender: RANBAXY
  Company Number: US-SUN PHARMACEUTICAL INDUSTRIES LTD-2025R1-543163

PATIENT
  Age: 16 Year
  Sex: Female
  Weight: 52.5 kg

DRUGS (1)
  1. PERAMPANEL [Suspect]
     Active Substance: PERAMPANEL
     Indication: Product used for unknown indication
     Dosage: 1.52 MILLIGRAM/KILOGRAM, 80 MG TOTAL
     Route: 065

REACTIONS (4)
  - Depressed level of consciousness [Unknown]
  - Toxicity to various agents [Unknown]
  - Overdose [Unknown]
  - Sinus tachycardia [Unknown]
